FAERS Safety Report 9106215 (Version 1)
Quarter: 2013Q1

REPORT INFORMATION
  Report Type: Spontaneous
  Country: US (occurrence: US)
  Receive Date: 20130220
  Receipt Date: 20130220
  Transmission Date: 20140127
  Serious: No
  Sender: FDA-Public Use
  Company Number: US-ASTRAZENECA-2013SE03408

PATIENT
  Age: 63 Year
  Sex: Female
  Weight: 83.5 kg

DRUGS (6)
  1. METOPROLOL SUCCINATE [Suspect]
     Indication: HYPERTENSION
     Route: 048
     Dates: start: 201209
  2. METOPROLOL SUCCINATE [Suspect]
     Indication: ATRIAL FIBRILLATION
     Route: 048
     Dates: start: 201209
  3. ATENOLOL [Suspect]
     Indication: HYPERTENSION
     Route: 048
  4. ALLEGRA [Concomitant]
     Indication: MULTIPLE ALLERGIES
  5. MUSINEX [Concomitant]
     Indication: MULTIPLE ALLERGIES
  6. METAMUCIL [Concomitant]
     Indication: CONSTIPATION

REACTIONS (7)
  - Blood pressure increased [Unknown]
  - Middle insomnia [Unknown]
  - Fatigue [Unknown]
  - Asthenia [Unknown]
  - Atrial fibrillation [Unknown]
  - Blood pressure decreased [Recovered/Resolved]
  - Drug ineffective [Unknown]
